FAERS Safety Report 7078721 (Version 6)
Quarter: 2013Q3

REPORT INFORMATION
  Report Type: Report from Study
  Country: JP (occurrence: JP)
  Receive Date: 20090811
  Receipt Date: 20130819
  Transmission Date: 20140515
  Serious: Yes (Hospitalization, Other)
  Sender: FDA-Public Use
  Company Number: JP-ABBOTT-09P-087-0588962-00

PATIENT
  Age: 45 Year
  Sex: Male

DRUGS (10)
  1. NORVIR SOFT GELATIN CAPSULES [Suspect]
     Indication: HIV INFECTION
     Dosage: 100 MG DAILY
     Route: 048
     Dates: start: 20050815, end: 20050818
  2. NORVIR SOFT GELATIN CAPSULES [Suspect]
     Dosage: 200 MG DAILY
     Route: 048
     Dates: start: 20050819, end: 20110419
  3. NORVIR SOFT GELATIN CAPSULES [Suspect]
     Dosage: 100 MG DAILY
     Route: 048
     Dates: start: 20110420
  4. NORVIR SOFT GELATIN CAPSULES [Suspect]
     Dosage: 100 MG DAILY
     Route: 048
     Dates: start: 20120401, end: 20120522
  5. RETROVIR [Suspect]
     Indication: HIV INFECTION
     Route: 048
     Dates: start: 19960926, end: 19991013
  6. RETROVIR [Suspect]
     Route: 048
     Dates: start: 20060329
  7. LEXIVA [Suspect]
     Indication: HIV INFECTION
     Route: 048
     Dates: start: 20050819
  8. LEXIVA [Suspect]
     Route: 048
     Dates: start: 20120401, end: 20120522
  9. TRUVADA [Suspect]
     Indication: HIV INFECTION
     Dosage: ONE TABLET DAILY
     Route: 048
     Dates: start: 20060329
  10. RALTEGRAVIR [Concomitant]
     Indication: PRODUCT USED FOR UNKNOWN INDICATION
     Dates: start: 20120523

REACTIONS (3)
  - Osteoma [Recovering/Resolving]
  - Hypertriglyceridaemia [Not Recovered/Not Resolved]
  - Diarrhoea [Recovered/Resolved]
